FAERS Safety Report 4560384-0 (Version None)
Quarter: 2005Q1

REPORT INFORMATION
  Report Type: 
  Country: None (occurrence: None)
  Receive Date: 20050125
  Receipt Date: 20041007
  Transmission Date: 20050727
  Serious: Yes (Other)
  Sender: FDA-Public Use
  Company Number: US-ROCHE-382840

PATIENT
  Age: 68 Year
  Sex: Female
  Weight: 75.8 kg

DRUGS (8)
  1. PEGASYS [Suspect]
     Route: 058
     Dates: start: 20040910, end: 20041215
  2. PEGASYS [Suspect]
     Route: 058
     Dates: start: 20041215
  3. COPEGUS [Suspect]
     Dosage: 5 TABLETS (200 MG) TAKEN DAILY.
     Route: 048
     Dates: start: 20040910, end: 20041004
  4. COPEGUS [Suspect]
     Dosage: DOSAGE REGIME REPORTED AS ^2 AM; 2 PM^ DOSE REDUCED TO 4 TABLETS (200 MG) TAKEN DAILY
     Route: 048
     Dates: start: 20041004, end: 20041215
  5. COPEGUS [Suspect]
     Dosage: THREE PILLS (200 MG) DAILY
     Route: 048
     Dates: start: 20041215
  6. VICODIN [Concomitant]
     Indication: BACK PAIN
     Route: 048
  7. ACEON [Concomitant]
     Indication: HYPERTENSION
     Route: 048
  8. GLYBURIDE [Concomitant]
     Dosage: 1 PILL /DAY
     Route: 048

REACTIONS (14)
  - ALOPECIA [None]
  - ASTHENIA [None]
  - BONE MARROW DISORDER [None]
  - CHILLS [None]
  - COLONIC POLYP [None]
  - DYSPEPSIA [None]
  - HEADACHE [None]
  - HYPERHIDROSIS [None]
  - NAUSEA [None]
  - RASH [None]
  - RED BLOOD CELL COUNT DECREASED [None]
  - VISION BLURRED [None]
  - VISUAL DISTURBANCE [None]
  - WHITE BLOOD CELL COUNT DECREASED [None]
